FAERS Safety Report 18125098 (Version 2)
Quarter: 2020Q3

REPORT INFORMATION
  Report Type: Spontaneous
  Country: IT (occurrence: IT)
  Receive Date: 20200807
  Receipt Date: 20200824
  Transmission Date: 20201103
  Serious: No
  Sender: FDA-Public Use
  Company Number: IT-TOLMAR, INC.-20IT022258

PATIENT
  Age: 51 Year
  Sex: Female

DRUGS (1)
  1. ELIGARD [Suspect]
     Active Substance: LEUPROLIDE ACETATE
     Indication: BLOOD GONADOTROPHIN INCREASED
     Dosage: 45 MG, Q 6 MONTH
     Route: 058
     Dates: start: 20200728

REACTIONS (6)
  - Wrong technique in product usage process [Unknown]
  - Syringe issue [Unknown]
  - Product administration error [Unknown]
  - Device leakage [Unknown]
  - Underdose [Unknown]
  - Off label use [Unknown]

NARRATIVE: CASE EVENT DATE: 20200728
